FAERS Safety Report 14346209 (Version 3)
Quarter: 2018Q2

REPORT INFORMATION
  Report Type: Report from Study
  Country: GB (occurrence: GB)
  Receive Date: 20180103
  Receipt Date: 20180511
  Transmission Date: 20180711
  Serious: Yes (Other)
  Sender: FDA-Public Use
  Company Number: GB-BRISTOL-MYERS SQUIBB COMPANY-BMS-2017-001533

PATIENT
  Sex: Female

DRUGS (10)
  1. ABATACEPT [Suspect]
     Active Substance: ABATACEPT
     Indication: RHEUMATOID ARTHRITIS
     Dosage: 125 MG, QWK
     Route: 058
     Dates: start: 20150109
  2. TRAMADOL. [Concomitant]
     Active Substance: TRAMADOL
     Indication: ANALGESIC THERAPY
     Route: 065
  3. ABATACEPT [Suspect]
     Active Substance: ABATACEPT
     Indication: PRODUCT USED FOR UNKNOWN INDICATION
     Dosage: 125 MG, QWK
     Route: 058
     Dates: start: 201505
  4. LEFLUNOMIDE. [Concomitant]
     Active Substance: LEFLUNOMIDE
     Indication: RHEUMATOID ARTHRITIS
     Dosage: 10 MG, UNK
     Route: 048
  5. CO ACEARTIN [Concomitant]
     Indication: BLOOD PRESSURE INCREASED
     Dosage: 30 MG, UNK
     Route: 048
  6. MELOXCAM [Concomitant]
     Active Substance: MELOXICAM
     Indication: RHEUMATOID ARTHRITIS
     Dosage: 7.5 MG, UNK
     Route: 048
  7. RAMIPRIL. [Concomitant]
     Active Substance: RAMIPRIL
     Indication: BLOOD PRESSURE INCREASED
     Dosage: 10 MG, UNK
     Route: 048
  8. DOXACIN                            /00055701/ [Concomitant]
     Indication: BLOOD PRESSURE INCREASED
     Dosage: 2 MG, UNK
     Route: 048
  9. ATENOLOL. [Concomitant]
     Active Substance: ATENOLOL
     Indication: BLOOD PRESSURE INCREASED
     Dosage: 20 MG, UNK
     Route: 048
  10. GABAPENTIN. [Concomitant]
     Active Substance: GABAPENTIN
     Indication: PRODUCT USED FOR UNKNOWN INDICATION
     Dosage: 300 MG, UNK
     Route: 065

REACTIONS (3)
  - Actinic keratosis [Unknown]
  - Influenza [Not Recovered/Not Resolved]
  - Basal cell carcinoma [Recovered/Resolved]
